FAERS Safety Report 22597896 (Version 1)
Quarter: 2023Q2

REPORT INFORMATION
  Report Type: Spontaneous
  Country: US (occurrence: US)
  Receive Date: 20230614
  Receipt Date: 20230614
  Transmission Date: 20230721
  Serious: No
  Sender: FDA-Public Use
  Company Number: US-ELI_LILLY_AND_COMPANY-US202306001505

PATIENT
  Age: 65 Year
  Sex: Female

DRUGS (1)
  1. MOUNJARO [Suspect]
     Active Substance: TIRZEPATIDE
     Indication: Product used for unknown indication
     Dosage: 7.5 MG, UNKNOWN
     Route: 058
     Dates: start: 20230527

REACTIONS (11)
  - Dizziness [Recovering/Resolving]
  - Headache [Recovering/Resolving]
  - Pain [Recovering/Resolving]
  - Pain of skin [Recovering/Resolving]
  - Eye pain [Recovering/Resolving]
  - Sleep disorder due to general medical condition, insomnia type [Recovering/Resolving]
  - Nausea [Recovering/Resolving]
  - Dyspepsia [Recovering/Resolving]
  - Eructation [Recovering/Resolving]
  - Constipation [Not Recovered/Not Resolved]
  - Injection site pain [Recovering/Resolving]

NARRATIVE: CASE EVENT DATE: 20230527
